FAERS Safety Report 9552396 (Version 1)
Quarter: 2013Q3

REPORT INFORMATION
  Report Type: Spontaneous
  Country: US (occurrence: None)
  Receive Date: 20130924
  Receipt Date: 20130924
  Transmission Date: 20140515
  Serious: Yes (Life-Threatening)
  Sender: FDA-Public Use
  Company Number: None

PATIENT
  Age: 72 Year
  Sex: Female
  Weight: 49.9 kg

DRUGS (1)
  1. FORTEO [Suspect]
     Indication: OSTEOPOROSIS
     Dosage: INJECTION ONCE DAILY INTO THE MUSCLE
     Route: 030
     Dates: start: 201205

REACTIONS (3)
  - Pemphigus [None]
  - Rash [None]
  - Eye disorder [None]
